FAERS Safety Report 16896100 (Version 1)
Quarter: 2019Q4

REPORT INFORMATION
  Report Type: Spontaneous
  Country: US (occurrence: US)
  Receive Date: 20191008
  Receipt Date: 20191008
  Transmission Date: 20200122
  Serious: No
  Sender: FDA-Public Use
  Company Number: US-WOCKHARDT USA, LLC-2075415

PATIENT
  Age: 50 Year
  Sex: Male

DRUGS (5)
  1. ENALAPRIL MALEATE. [Suspect]
     Active Substance: ENALAPRIL MALEATE
     Indication: HYPERTENSION
     Route: 048
     Dates: start: 20190923, end: 20190924
  2. ZINC. [Concomitant]
     Active Substance: ZINC
  3. COQ-10 SUPPLEMENT [Concomitant]
  4. PROBIOTIC [Concomitant]
     Active Substance: PROBIOTICS NOS
  5. TART CHERRY SUPPLEMENT [Concomitant]

REACTIONS (1)
  - Drug ineffective [Recovering/Resolving]

NARRATIVE: CASE EVENT DATE: 20190923
